FAERS Safety Report 6864749-3 (Version None)
Quarter: 2010Q3

REPORT INFORMATION
  Report Type: 
  Country: None (occurrence: None)
  Receive Date: 20100721
  Receipt Date: 20080327
  Transmission Date: 20110219
  Serious: No
  Sender: FDA-Public Use
  Company Number: US-PFIZER INC-2008029821

PATIENT
  Sex: Female
  Weight: 82.727 kg

DRUGS (7)
  1. CHANTIX [Suspect]
     Indication: SMOKING CESSATION THERAPY
     Dates: start: 20080303
  2. HYDROCHLOROTHIAZIDE [Concomitant]
  3. NEXIUM [Concomitant]
  4. ESTRADIOL [Concomitant]
  5. VITAMINS [Concomitant]
  6. CYANOCOBALAMIN [Concomitant]
  7. CALCIUM [Concomitant]

REACTIONS (3)
  - ABDOMINAL PAIN UPPER [None]
  - FLATULENCE [None]
  - NAUSEA [None]
